FAERS Safety Report 8356588-1 (Version None)
Quarter: 2012Q2

REPORT INFORMATION
  Report Type: 
  Country: None (occurrence: None)
  Receive Date: 20120514
  Receipt Date: 20120508
  Transmission Date: 20120825
  Serious: Yes (Other)
  Sender: FDA-Public Use
  Company Number: PHHY2011US39753

PATIENT
  Sex: Female
  Weight: 63.946 kg

DRUGS (1)
  1. RECLAST [Suspect]
     Indication: OSTEOPOROSIS POSTMENOPAUSAL
     Dosage: 5 MG
     Route: 042
     Dates: start: 20110429, end: 20110429

REACTIONS (4)
  - FATIGUE [None]
  - PAIN [None]
  - COLON CANCER [None]
  - INFLUENZA LIKE ILLNESS [None]
